FAERS Safety Report 10342470 (Version 2)
Quarter: 2014Q3

REPORT INFORMATION
  Report Type: Spontaneous
  Country: US (occurrence: US)
  Receive Date: 20140725
  Receipt Date: 20140725
  Transmission Date: 20150326
  Serious: Yes (Hospitalization, Other)
  Sender: FDA-Public Use
  Company Number: US-009507513-2011SP006195

PATIENT
  Sex: Female
  Weight: 72.7 kg

DRUGS (2)
  1. SKUDAL [Concomitant]
  2. NUVARING [Suspect]
     Active Substance: ETHINYL ESTRADIOL\ETONOGESTREL
     Indication: CONTRACEPTION
     Dates: start: 200702, end: 200910

REACTIONS (10)
  - Anxiety [Not Recovered/Not Resolved]
  - Electrocardiogram abnormal [Recovered/Resolved]
  - Plantar fasciitis [Recovered/Resolved with Sequelae]
  - Pulmonary embolism [Unknown]
  - Dyspepsia [Unknown]
  - Ligament sprain [Recovered/Resolved with Sequelae]
  - Oedema peripheral [Unknown]
  - Insomnia [Not Recovered/Not Resolved]
  - Hypertension [Not Recovered/Not Resolved]
  - Urinary tract infection [Unknown]

NARRATIVE: CASE EVENT DATE: 2009
